FAERS Safety Report 7390352-5 (Version None)
Quarter: 2011Q2

REPORT INFORMATION
  Report Type: 
  Country: None (occurrence: None)
  Receive Date: 20110401
  Receipt Date: 20110328
  Transmission Date: 20111010
  Serious: Yes (Death)
  Sender: FDA-Public Use
  Company Number: US-US-EMD SERONO, INC.-7049504

PATIENT
  Sex: Male

DRUGS (6)
  1. TERAZOSIN HYDROCHLORIDE [Concomitant]
  2. VESICARE [Concomitant]
     Indication: BLADDER DISORDER
  3. CITALOPRAM HYDROBROMIDE [Concomitant]
  4. AMANTADINE HCL [Concomitant]
  5. REBIF [Suspect]
     Indication: RELAPSING-REMITTING MULTIPLE SCLEROSIS
     Route: 058
     Dates: start: 20060614, end: 20110101
  6. GABAPENTIN [Concomitant]

REACTIONS (2)
  - RELAPSING-REMITTING MULTIPLE SCLEROSIS [None]
  - MYOCARDIAL INFARCTION [None]
